FAERS Safety Report 7084847-1 (Version None)
Quarter: 2010Q4

REPORT INFORMATION
  Report Type: 
  Country: None (occurrence: None)
  Receive Date: 20101105
  Receipt Date: 20101028
  Transmission Date: 20110411
  Serious: No
  Sender: FDA-Public Use
  Company Number: US-BIOGENIDEC-2010BI037897

PATIENT
  Sex: Female

DRUGS (2)
  1. AVONEX [Suspect]
     Indication: MULTIPLE SCLEROSIS
     Route: 030
     Dates: start: 20001114
  2. AVONEX [Suspect]
     Route: 030

REACTIONS (5)
  - BLOOD POTASSIUM INCREASED [None]
  - DIZZINESS [None]
  - FATIGUE [None]
  - INJECTION SITE PAIN [None]
  - MOBILITY DECREASED [None]
